FAERS Safety Report 18631785 (Version 7)
Quarter: 2021Q3

REPORT INFORMATION
  Report Type: Spontaneous
  Country: DE (occurrence: US)
  Receive Date: 20201217
  Receipt Date: 20210712
  Transmission Date: 20211014
  Serious: Yes (Death, Hospitalization, Other)
  Sender: FDA-Public Use
  Company Number: DE-ABBVIE-20K-062-3691769-00

PATIENT
  Age: 76 Year
  Sex: Female

DRUGS (34)
  1. RITUXIMAB. [Suspect]
     Active Substance: RITUXIMAB
     Route: 065
     Dates: start: 20200210, end: 20200210
  2. LAXOBERAL [Concomitant]
     Active Substance: SODIUM PICOSULFATE
     Indication: PRODUCT USED FOR UNKNOWN INDICATION
     Dosage: AS REQUIRED
     Dates: end: 2019
  3. RITUXIMAB. [Suspect]
     Active Substance: RITUXIMAB
     Indication: PRODUCT USED FOR UNKNOWN INDICATION
     Dosage: 682.5 MG (375 MG/M2 BODY SURFACE)
     Route: 065
     Dates: start: 201909, end: 20190909
  4. RITUXIMAB. [Suspect]
     Active Substance: RITUXIMAB
     Route: 065
     Dates: start: 20200114, end: 20200114
  5. DULCOLAX NOS [Concomitant]
     Active Substance: BISACODYL OR DOCUSATE SODIUM
     Indication: PRODUCT USED FOR UNKNOWN INDICATION
     Dosage: AS REQUIRED
  6. PARACETAMOL [Concomitant]
     Active Substance: ACETAMINOPHEN
     Indication: FEELING HOT
  7. DIMETINDEN [Concomitant]
     Active Substance: DIMETHINDENE
     Indication: FEELING HOT
  8. VAXIGRIPTETRA [Concomitant]
     Active Substance: INFLUENZA VIRUS VACCINE QUADRIVALENT TYPE A+B
     Indication: PRODUCT USED FOR UNKNOWN INDICATION
     Dates: start: 20200210
  9. CBD [Concomitant]
     Active Substance: CANNABIDIOL
     Indication: PRODUCT USED FOR UNKNOWN INDICATION
  10. RITUXIMAB. [Suspect]
     Active Substance: RITUXIMAB
     Dosage: 910 MG (500 MG/M2)
     Route: 065
     Dates: start: 20191014, end: 20191014
  11. RITUXIMAB. [Suspect]
     Active Substance: RITUXIMAB
     Route: 065
     Dates: start: 20200427, end: 20200427
  12. VENLAFAXIN [Concomitant]
     Active Substance: VENLAFAXINE HYDROCHLORIDE
     Indication: PRODUCT USED FOR UNKNOWN INDICATION
  13. PREDNISOLON [Concomitant]
     Active Substance: PREDNISOLONE
     Indication: DYSPNOEA
  14. PREDNISOLON [Concomitant]
     Active Substance: PREDNISOLONE
     Indication: FEELING HOT
  15. ZOMETA [Concomitant]
     Active Substance: ZOLEDRONIC ACID
     Indication: PRODUCT USED FOR UNKNOWN INDICATION
  16. NOVALGIN [Concomitant]
     Indication: PAIN
     Dosage: 4 TIMES
     Dates: end: 2019
  17. CIPROFLOXACIN. [Concomitant]
     Active Substance: CIPROFLOXACIN
     Indication: PRODUCT USED FOR UNKNOWN INDICATION
     Dates: end: 201909
  18. PARACETAMOL [Concomitant]
     Active Substance: ACETAMINOPHEN
     Indication: DYSPNOEA
  19. IMMUNOGLOBULIN [Concomitant]
     Dates: start: 20200114, end: 20200114
  20. ADENURIC [Concomitant]
     Active Substance: FEBUXOSTAT
     Indication: PRODUCT USED FOR UNKNOWN INDICATION
     Dates: end: 2019
  21. IMMUNOGLOBULIN [Concomitant]
     Indication: PRODUCT USED FOR UNKNOWN INDICATION
     Dates: start: 20191014
  22. IMMUNOGLOBULIN [Concomitant]
     Dates: start: 20191112, end: 20191112
  23. ASPIRIN. [Concomitant]
     Active Substance: ASPIRIN
     Indication: PRODUCT USED FOR UNKNOWN INDICATION
     Dates: start: 202003
  24. PANTOPRAZOL [Concomitant]
     Active Substance: PANTOPRAZOLE SODIUM
     Indication: PRODUCT USED FOR UNKNOWN INDICATION
  25. MOVICOL [Concomitant]
     Active Substance: POLYETHYLENE GLYCOL 3350\POTASSIUM CHLORIDE\SODIUM BICARBONATE\SODIUM CHLORIDE
     Indication: PRODUCT USED FOR UNKNOWN INDICATION
     Dosage: AS REQUIRED
  26. MST [Concomitant]
     Indication: PRODUCT USED FOR UNKNOWN INDICATION
     Dates: end: 201909
  27. DIMETINDEN [Concomitant]
     Active Substance: DIMETHINDENE
     Indication: DYSPNOEA
  28. PREDNISOLON [Concomitant]
     Active Substance: PREDNISOLONE
     Indication: HYPERCALCAEMIA
  29. AMOXICILLIN SULBACTAM [Concomitant]
     Active Substance: AMOXICILLIN\SULBACTAM
     Indication: PRODUCT USED FOR UNKNOWN INDICATION
     Route: 048
     Dates: start: 20200131
  30. VENCLYXTO [Suspect]
     Active Substance: VENETOCLAX
     Indication: CHRONIC LYMPHOCYTIC LEUKAEMIA
     Route: 048
     Dates: start: 201908, end: 2019
  31. VENCLYXTO [Suspect]
     Active Substance: VENETOCLAX
     Route: 048
     Dates: start: 2019, end: 2020
  32. RITUXIMAB. [Suspect]
     Active Substance: RITUXIMAB
     Route: 065
     Dates: start: 20200309, end: 20200309
  33. RITUXIMAB. [Suspect]
     Active Substance: RITUXIMAB
     Route: 065
     Dates: start: 20200331, end: 20200331
  34. IMMUNOGLOBULIN [Concomitant]
     Dates: start: 20191223, end: 20191223

REACTIONS (60)
  - Lymphoma [Fatal]
  - Back pain [Unknown]
  - Sinus disorder [Unknown]
  - Pollakiuria [Unknown]
  - Chills [Unknown]
  - Cerebral ischaemia [Unknown]
  - Vasogenic cerebral oedema [Unknown]
  - Marrow hyperplasia [Unknown]
  - Necrosis [Unknown]
  - Enterococcal infection [Unknown]
  - Fatigue [Unknown]
  - Visual impairment [Fatal]
  - Mobility decreased [Unknown]
  - Animal scratch [Unknown]
  - Pulmonary artery thrombosis [Unknown]
  - Hepatic steatosis [Unknown]
  - Hypercalcaemia [Unknown]
  - Pyrexia [Recovered/Resolved]
  - Diarrhoea [Unknown]
  - Progressive multifocal leukoencephalopathy [Fatal]
  - Productive cough [Unknown]
  - Visual acuity reduced [Not Recovered/Not Resolved]
  - Stress fracture [Unknown]
  - Vasogenic cerebral oedema [Unknown]
  - Noninfective encephalitis [Unknown]
  - Lymphadenopathy [Unknown]
  - Myocardial infarction [Unknown]
  - Sciatica [Unknown]
  - Varicose vein [Unknown]
  - Head discomfort [Unknown]
  - Actinic keratosis [Unknown]
  - Cerebral microangiopathy [Unknown]
  - Visual field defect [Unknown]
  - Depressed mood [Unknown]
  - Neurological decompensation [Unknown]
  - Apathy [Recovered/Resolved]
  - Feeling cold [Unknown]
  - Apathy [Unknown]
  - Posterior reversible encephalopathy syndrome [Fatal]
  - Nervous system disorder [Fatal]
  - Dysuria [Unknown]
  - Headache [Recovered/Resolved]
  - Sinus pain [Unknown]
  - Cerebral hypoperfusion [Unknown]
  - Upper respiratory tract infection [Unknown]
  - Pneumonia [Fatal]
  - Cardiac perfusion defect [Unknown]
  - Throat irritation [Unknown]
  - Pain in extremity [Unknown]
  - Encephalitis viral [Not Recovered/Not Resolved]
  - Leukocyturia [Unknown]
  - Blood brain barrier defect [Unknown]
  - Cough [Unknown]
  - Constipation [Unknown]
  - Visual acuity reduced [Fatal]
  - Skin lesion [Unknown]
  - Pain [Unknown]
  - Scintillating scotoma [Unknown]
  - Bone fissure [Unknown]
  - Dizziness [Unknown]

NARRATIVE: CASE EVENT DATE: 2019
